FAERS Safety Report 7590065-0 (Version None)
Quarter: 2011Q3

REPORT INFORMATION
  Report Type: 
  Country: None (occurrence: None)
  Receive Date: 20110705
  Receipt Date: 20110624
  Transmission Date: 20111222
  Serious: Yes (Life-Threatening)
  Sender: FDA-Public Use
  Company Number: B0683409A

PATIENT
  Sex: Male
  Weight: 71 kg

DRUGS (54)
  1. FLUDARABINE PHOSPHATE [Suspect]
     Indication: ALLOGENIC BONE MARROW TRANSPLANTATION THERAPY
     Dosage: 30MGM2 PER DAY
     Route: 042
     Dates: start: 20091016, end: 20091019
  2. ACETAMINOPHEN [Concomitant]
     Route: 048
     Dates: start: 20091111
  3. POTASSIUM CHLORIDE [Concomitant]
     Dosage: 20ML PER DAY
     Route: 042
     Dates: end: 20091201
  4. HIRUDOID [Concomitant]
     Dosage: 25G PER DAY
     Route: 042
     Dates: start: 20091207
  5. PHYSIO 35 [Concomitant]
     Dosage: 2500ML PER DAY
     Route: 042
     Dates: start: 20091124, end: 20091227
  6. PROTEAMIN [Concomitant]
     Dosage: 200ML PER DAY
     Route: 042
     Dates: start: 20091124, end: 20091227
  7. FUROSEMIDE [Concomitant]
     Dosage: 20MG PER DAY
     Route: 042
     Dates: end: 20091229
  8. ASPARA K [Concomitant]
     Dosage: 30ML PER DAY
     Route: 042
     Dates: start: 20091201
  9. METHOTREXATE [Concomitant]
     Dosage: 17MG PER DAY
     Route: 065
     Dates: start: 20091101, end: 20091101
  10. SEPAMIT [Concomitant]
     Route: 042
     Dates: start: 20091209, end: 20091213
  11. SOLITA-T NO.3 [Concomitant]
     Dosage: 2500ML PER DAY
     Route: 042
     Dates: start: 20091206, end: 20091225
  12. ANTHROBIN P [Concomitant]
     Dosage: 1.5IU3 PER DAY
     Route: 042
     Dates: end: 20091230
  13. ATROPINE SULFATE [Concomitant]
     Dosage: .5MG PER DAY
     Dates: start: 20091111, end: 20091214
  14. TACROLIMUS [Concomitant]
     Dosage: .3MG PER DAY
     Route: 065
     Dates: start: 20091204, end: 20100209
  15. MEROPENEM [Concomitant]
     Dosage: 2100MG PER DAY
     Route: 042
     Dates: end: 20091208
  16. ELECTROLYTE FLUID [Concomitant]
     Dosage: 2ML PER DAY
     Route: 042
     Dates: start: 20091124, end: 20091227
  17. GRAN [Concomitant]
     Dosage: 1IUAX PER DAY
     Dates: end: 20091116
  18. METHOTREXATE [Concomitant]
     Dosage: 17MG PER DAY
     Route: 065
     Dates: start: 20091027, end: 20091027
  19. FAMOTIDINE [Concomitant]
     Dosage: 20MG PER DAY
     Route: 048
     Dates: start: 20091110
  20. AZUNOL [Concomitant]
     Dosage: 40G PER DAY
     Route: 042
     Dates: start: 20091207
  21. ALKERAN [Suspect]
     Indication: ALLOGENIC BONE MARROW TRANSPLANTATION THERAPY
     Dosage: 70MG PER DAY
     Route: 042
     Dates: start: 20091018, end: 20091019
  22. TACROLIMUS [Concomitant]
     Indication: IMMUNOSUPPRESSION
     Dosage: .4MG PER DAY
     Route: 065
     Dates: start: 20091020, end: 20091105
  23. URSO 250 [Concomitant]
     Dosage: 900MG PER DAY
     Route: 048
  24. LOPEMIN [Concomitant]
     Dosage: 2MG PER DAY
     Route: 042
     Dates: start: 20091130, end: 20100103
  25. POTASSIUM CHLORIDE [Concomitant]
     Dosage: 5G PER DAY
     Route: 042
     Dates: start: 20091124, end: 20091214
  26. NITRAZEPAM [Concomitant]
     Dosage: 10MG PER DAY
     Dates: start: 20091111, end: 20091214
  27. SOLU-MEDROL [Suspect]
     Dosage: 60ML PER DAY
     Route: 042
     Dates: start: 20091201
  28. VALTREX [Concomitant]
     Dosage: 1500MG PER DAY
     Route: 048
  29. GOODMIN [Concomitant]
     Route: 048
     Dates: start: 20091110, end: 20091114
  30. PROGRAF [Concomitant]
     Dosage: .3MG PER DAY
     Route: 048
     Dates: start: 20091221, end: 20091223
  31. NEOLAMIN [Concomitant]
     Dosage: 1IUAX PER DAY
     Route: 042
     Dates: start: 20091124, end: 20091227
  32. IMMUNE GLOBULIN (HUMAN) [Concomitant]
     Dosage: 5G PER DAY
     Route: 042
     Dates: start: 20091124, end: 20091214
  33. MAXIPIME [Concomitant]
     Dosage: 3G PER DAY
     Route: 042
     Dates: start: 20091110
  34. SOLITA-T [Concomitant]
     Dosage: 500ML PER DAY
     Route: 042
     Dates: start: 20091201, end: 20091201
  35. AMBISOME [Concomitant]
     Dosage: 100MG PER DAY
     Route: 042
  36. HEPARIN [Concomitant]
     Dosage: 3ML PER DAY
     Dates: start: 20091203
  37. SODIUM CHLORIDE [Concomitant]
     Dosage: 80ML PER DAY
     Route: 042
     Dates: start: 20091124, end: 20091227
  38. CONCLYTE-MG [Concomitant]
     Dosage: 10ML PER DAY
     Dates: end: 20091214
  39. PROGRAF [Concomitant]
     Dosage: .3MG PER DAY
     Route: 042
     Dates: start: 20091205
  40. TARGOCID [Concomitant]
     Dosage: 800MG PER DAY
     Route: 042
     Dates: start: 20091107, end: 20091111
  41. GAMIMUNE N 5% [Concomitant]
     Dosage: 5G PER DAY
     Route: 042
     Dates: start: 20091110
  42. ALBUMIN (HUMAN) [Concomitant]
     Dosage: 100ML PER DAY
     Route: 042
     Dates: start: 20091126, end: 20091228
  43. SOLITA-T [Concomitant]
     Dosage: 500ML PER DAY
     Route: 042
     Dates: start: 20091130, end: 20091205
  44. ALBUMIN (HUMAN) [Concomitant]
     Dosage: 500ML PER DAY
     Route: 042
     Dates: start: 20091202, end: 20091203
  45. CALCICOL [Concomitant]
     Dosage: 20ML PER DAY
     Route: 042
     Dates: start: 20091203, end: 20091223
  46. METHOTREXATE [Concomitant]
     Indication: IMMUNOSUPPRESSION
     Dosage: 25MG PER DAY
     Route: 065
     Dates: start: 20091022, end: 20091022
  47. METHOTREXATE [Concomitant]
     Dosage: 17MG PER DAY
     Route: 065
     Dates: start: 20091024, end: 20091024
  48. ULCERLMIN [Concomitant]
     Dosage: 20ML PER DAY
     Route: 048
     Dates: end: 20091117
  49. VFEND [Concomitant]
     Dosage: 400MG PER DAY
     Route: 042
     Dates: end: 20091209
  50. SULFAMETHOXAZOLE [Concomitant]
     Dosage: 2IUAX PER DAY
     Route: 042
     Dates: start: 20091118, end: 20091206
  51. FRAGMIN [Concomitant]
     Dosage: 9ML PER DAY
     Route: 042
  52. AMIKACIN SULFATE [Concomitant]
     Dosage: 20MG PER DAY
     Dates: end: 20091106
  53. SODIUM BICARBONATE [Concomitant]
     Dosage: 100ML PER DAY
     Route: 042
     Dates: start: 20091203, end: 20091203
  54. BENAMBAX [Concomitant]
     Dosage: 1IUAX PER DAY
     Dates: start: 20091204, end: 20091221

REACTIONS (7)
  - GRAFT VERSUS HOST DISEASE [None]
  - INTERSTITIAL LUNG DISEASE [None]
  - FUNGAL INFECTION [None]
  - CONDITION AGGRAVATED [None]
  - SEPSIS [None]
  - VIRAL INFECTION [None]
  - BACTERIAL INFECTION [None]
